FAERS Safety Report 20156016 (Version 1)
Quarter: 2021Q4

REPORT INFORMATION
  Report Type: Spontaneous
  Country: US (occurrence: None)
  Receive Date: 20211206
  Receipt Date: 20211206
  Transmission Date: 20220304
  Serious: Yes (Disabling)
  Sender: FDA-Public Use
  Company Number: None

PATIENT
  Age: 72 Year
  Sex: Male
  Weight: 101.25 kg

DRUGS (16)
  1. CHANTIX [Suspect]
     Active Substance: VARENICLINE TARTRATE
     Indication: Smoking cessation therapy
     Route: 048
     Dates: start: 20210524, end: 20210713
  2. ATORVASTATIN CALCIUM [Concomitant]
  3. FLUTICASONE PROPIONATE [Concomitant]
  4. GLIPIZIDE [Concomitant]
  5. HYDROCHLOROTHIAZIDE [Concomitant]
     Active Substance: HYDROCHLOROTHIAZIDE
  6. KEPPRA [Concomitant]
     Active Substance: LEVETIRACETAM
  7. LORATADINE [Concomitant]
     Active Substance: LORATADINE
  8. LORAZEPAM [Concomitant]
     Active Substance: LORAZEPAM
  9. LOSARTAN POTASSIUM [Concomitant]
     Active Substance: LOSARTAN POTASSIUM
  10. METFORMIN HCL [Concomitant]
  11. SERTRALINE HYDROCHLORIDE [Concomitant]
     Active Substance: SERTRALINE HYDROCHLORIDE
  12. ASPIRIN [Concomitant]
     Active Substance: ASPIRIN
  13. VITAMIN D3 [Concomitant]
     Active Substance: CHOLECALCIFEROL
  14. GUAIFENESIN [Concomitant]
     Active Substance: GUAIFENESIN
  15. MULTIVITAMIN [Concomitant]
  16. PRESERVISION [Concomitant]

REACTIONS (2)
  - Diabetic complication [None]
  - Blood glucose increased [None]

NARRATIVE: CASE EVENT DATE: 20211102
